FAERS Safety Report 8842583 (Version 1)
Quarter: 2012Q4

REPORT INFORMATION
  Report Type: 
  Country: DE (occurrence: DE)
  Receive Date: 20121016
  Receipt Date: 20121016
  Transmission Date: 20130627
  Serious: Yes (Death)
  Sender: FDA-Public Use
  Company Number: DE-OTSUKA-EU-2011-10135

PATIENT
  Sex: Male
  Weight: 87 kg

DRUGS (8)
  1. SAMSCA [Suspect]
     Indication: INAPPROPRIATE ANTIDIURETIC HORMONE SECRETION
     Dosage: 15 Mg milligram(s), daily dose
     Route: 048
     Dates: start: 20110518, end: 20110708
  2. SAMSCA [Suspect]
     Indication: NEOPLASM
  3. AMLODIPIN [Concomitant]
     Indication: HYPERTENSION
     Dosage: 5 Mg milligram(s), bid
     Route: 048
  4. TORASEMID [Concomitant]
     Indication: POLYURIA
     Dosage: 5 Mg milligram(s), daily dose
     Route: 048
     Dates: start: 20110526, end: 20110530
  5. CISPLATIN [Concomitant]
     Indication: NEUROENDOCRINE TUMOUR
     Dosage: 80 mg/m2, daily dose
     Route: 042
     Dates: start: 20110527, end: 20110527
  6. ETOPOSID [Concomitant]
     Indication: NEUROENDOCRINE TUMOUR
     Dosage: 120 mg/m2, daily dose
     Route: 042
     Dates: start: 20110527, end: 20110529
  7. ZOLEDRONATE [Concomitant]
     Indication: METASTASES TO BONE
     Dosage: 4 Mg milligram(s), daily dose
     Route: 042
     Dates: start: 20110529, end: 20110529
  8. HEPARIN [Concomitant]
     Indication: ARTERIAL OCCLUSIVE DISEASE
     Dosage: 30000 Iu, daily dose
     Route: 042
     Dates: start: 20110617

REACTIONS (6)
  - Peripheral embolism [Fatal]
  - Peripheral ischaemia [Fatal]
  - Pulmonary embolism [Fatal]
  - Dysgeusia [Unknown]
  - Dyspepsia [None]
  - Leg amputation [None]
